APPROVED DRUG PRODUCT: FLUOCINONIDE
Active Ingredient: FLUOCINONIDE
Strength: 0.05%
Dosage Form/Route: CREAM;TOPICAL
Application: A073030 | Product #001 | TE Code: AB1
Applicant: FOUGERA PHARMACEUTICALS INC
Approved: Oct 17, 1994 | RLD: No | RS: No | Type: RX